FAERS Safety Report 6092394-9 (Version None)
Quarter: 2009Q1

REPORT INFORMATION
  Report Type: 
  Country: None (occurrence: None)
  Receive Date: 20090225
  Receipt Date: 20090218
  Transmission Date: 20090719
  Serious: Yes (Other)
  Sender: FDA-Public Use
  Company Number: PHEH2009US01822

PATIENT
  Age: 89 Year
  Sex: Male

DRUGS (2)
  1. EXFORGE [Suspect]
     Dosage: 5/320 MG
     Route: 048
     Dates: start: 20090216, end: 20090218
  2. TRIAMTERENE [Concomitant]

REACTIONS (2)
  - EXPIRED DRUG ADMINISTERED [None]
  - TENDON DISORDER [None]
